FAERS Safety Report 18135010 (Version 1)
Quarter: 2020Q3

REPORT INFORMATION
  Report Type: Spontaneous
  Country: US (occurrence: US)
  Receive Date: 20200811
  Receipt Date: 20200811
  Transmission Date: 20201103
  Serious: Yes (Other)
  Sender: FDA-Public Use
  Company Number: US-PFIZER INC-2020304358

PATIENT

DRUGS (1)
  1. DILANTIN [Suspect]
     Active Substance: PHENYTOIN

REACTIONS (1)
  - Cataract [Unknown]
